FAERS Safety Report 4338281-5 (Version None)
Quarter: 2004Q2

REPORT INFORMATION
  Report Type: 
  Country: None (occurrence: None)
  Receive Date: 20040407
  Receipt Date: 20040326
  Transmission Date: 20050107
  Serious: Yes (Hospitalization)
  Sender: FDA-Public Use
  Company Number: FR-JNJFOC-20040303269

PATIENT
  Age: 13 Year
  Sex: Female

DRUGS (4)
  1. RISPERDAL [Suspect]
     Indication: TOURETTE'S DISORDER
     Dosage: , IN 1 DAY, ORAL
     Route: 048
     Dates: start: 20030715, end: 20040201
  2. ORAP [Suspect]
     Indication: TOURETTE'S DISORDER
     Dosage: 2 MG, IN 1 DAY, ORAL
     Route: 048
     Dates: start: 20020531, end: 20030715
  3. SERETIDE (SERETIDE) [Concomitant]
  4. VENTOLIN [Concomitant]

REACTIONS (4)
  - ABDOMINAL PAIN [None]
  - DIARRHOEA [None]
  - ENTEROCOLITIS HAEMORRHAGIC [None]
  - RECTAL HAEMORRHAGE [None]
